FAERS Safety Report 9017459 (Version 1)
Quarter: 2013Q1

REPORT INFORMATION
  Report Type: Spontaneous
  Country: US (occurrence: US)
  Receive Date: 20130117
  Receipt Date: 20130117
  Transmission Date: 20140127
  Serious: Yes (Other)
  Sender: FDA-Public Use
  Company Number: US-TEVA-380270USA

PATIENT
  Sex: 0

DRUGS (3)
  1. COPAXONE [Suspect]
     Indication: MULTIPLE SCLEROSIS
  2. BETASERON [Concomitant]
  3. REBIF [Concomitant]

REACTIONS (2)
  - Multiple sclerosis relapse [Unknown]
  - Multiple sclerosis [Unknown]
